FAERS Safety Report 21566570 (Version 1)
Quarter: 2022Q4

REPORT INFORMATION
  Report Type: Report from Study
  Country: US (occurrence: US)
  Receive Date: 20221108
  Receipt Date: 20221108
  Transmission Date: 20230113
  Serious: Yes (Hospitalization)
  Sender: FDA-Public Use
  Company Number: US-ABBVIE-22K-163-4340014-00

PATIENT
  Age: 40 Year
  Sex: Female
  Weight: 119.30 kg

DRUGS (37)
  1. HUMIRA [Suspect]
     Active Substance: ADALIMUMAB
     Indication: Product used for unknown indication
     Dosage: CITRATE FREE
     Route: 058
     Dates: start: 20220131
  2. HUMIRA [Suspect]
     Active Substance: ADALIMUMAB
     Indication: Ankylosing spondylitis
     Dates: start: 202202
  3. HUMIRA [Suspect]
     Active Substance: ADALIMUMAB
     Indication: Psoriasis
  4. ADVAIR HFA [Concomitant]
     Active Substance: FLUTICASONE PROPIONATE\SALMETEROL XINAFOATE
     Indication: Product used for unknown indication
     Dosage: 45-25 MCG/INHALATION, INHALATION AEROSOL: 2 PUFF, TWICE A DAY FOR 30 DAYS, 1 EA, 0 REFILL
  5. ALBUTEROL SULFATE [Concomitant]
     Active Substance: ALBUTEROL SULFATE
     Indication: Product used for unknown indication
     Dosage: 90  MCG/INHALATION, INHALATION AEROSOL: 180 MCG, 2 PUFF, 1EA, 6 REFILLS
  6. CLINDAGEL [Concomitant]
     Active Substance: CLINDAMYCIN PHOSPHATE
     Indication: Product used for unknown indication
     Dosage: 1% TOPICAL GEL, EVERY BED TIME FOR 30 DAYS, 6 REFILLS
  7. FLUOXETINE [Concomitant]
     Active Substance: FLUOXETINE HYDROCHLORIDE
     Indication: Product used for unknown indication
     Dosage: ONE CAPSULE DAILY FOR 90 DAYS, 3 REFILLS.
     Route: 048
  8. FLONASE [Concomitant]
     Active Substance: FLUTICASONE PROPIONATE
     Indication: Product used for unknown indication
     Dosage: 50 MCG/INHALATION, 100 MCG, TWICE A DAY IN BOTH NOSTRIL FOR 30 DAYS, 16 GM, 0 REFILLS
     Route: 045
  9. LORAZEPAM [Concomitant]
     Active Substance: LORAZEPAM
     Indication: Product used for unknown indication
     Dosage: 2 TABLETS DAILY FOR 30 DAYS, 60 TABS, 3 REFILLS.
     Route: 048
  10. ATORVASTATIN [Concomitant]
     Active Substance: ATORVASTATIN
     Indication: Product used for unknown indication
     Dosage: ONE TABLET DAILY FOR 90 DAYS, 90 TABLETS, 3 REFILLS.
     Route: 048
  11. CYCLOBENZAPRINE [Concomitant]
     Active Substance: CYCLOBENZAPRINE
     Indication: Product used for unknown indication
     Dosage: 1 TABLET DAILY FOR 90 DAYS, PRN: SPASM, 90 TABLET, 3 REFILLS.
     Route: 048
  12. DESOGESTREL\ETHINYL ESTRADIOL [Concomitant]
     Active Substance: DESOGESTREL\ETHINYL ESTRADIOL
     Indication: Product used for unknown indication
     Dosage: 0.15-0.03 MG TABLET ORAL TABLET DAILY FOR 84 DAYS, 84 TABLETS, 3 REFILLS.
     Route: 048
  13. FENOFIBRIC ACID [Concomitant]
     Active Substance: FENOFIBRIC ACID
     Indication: Product used for unknown indication
     Dosage: DELAYED RELEASE CAPSULE, ONE CAPSULE DAILY FOR 90 DAYS, 90 CAPSULES, 3 REFILLS.
     Route: 048
  14. FUROSEMIDE [Concomitant]
     Active Substance: FUROSEMIDE
     Indication: Product used for unknown indication
     Dosage: ONE TABLET DAILY FOR 30 DAYS, 30 TABS, 6 REFILLS, PRN : SWELLING.
     Route: 048
  15. IBUPROFEN [Concomitant]
     Active Substance: IBUPROFEN
     Indication: Product used for unknown indication
     Dosage: 800 MG TABLET ORALLY THREE TIMES A DAY FOR 90 DAYS, 270 TABLETS, 3 REFILLS.
     Route: 048
  16. TRETINOIN [Concomitant]
     Active Substance: TRETINOIN
     Indication: Product used for unknown indication
     Dosage: 0.025% TOPICAL CREAM, EVERY BED TIME FOR 30 DAYS, 30 GM, 11 REFILLS.
  17. AIMOVIG [Concomitant]
     Active Substance: ERENUMAB-AOOE
     Indication: Product used for unknown indication
     Dosage: 70 MG/ML SUBCUTANEOUS SOLUTION, MONTHLY, 1 ML, 0 REFILLS.
     Route: 058
  18. COENZYME Q10 [Concomitant]
     Active Substance: DIETARY SUPPLEMENT\UBIDECARENONE
     Indication: Product used for unknown indication
     Dosage: 0 REFILLS.
     Route: 048
  19. ESGIC [Concomitant]
     Active Substance: ACETAMINOPHEN\BUTALBITAL\CAFFEINE
     Indication: Product used for unknown indication
     Dosage: 0 REFILLS.
     Route: 048
  20. MECLIZINE HYDROCHLORIDE [Concomitant]
     Active Substance: MECLIZINE HYDROCHLORIDE
     Indication: Product used for unknown indication
     Dosage: HOME PACKET, 1 TABLET THRICE A DAY, 30 TABLETS, PRN: NAUSEA AND VOMITING, 0 REFILLS.
     Route: 048
  21. NORCO [Concomitant]
     Active Substance: ACETAMINOPHEN\HYDROCODONE BITARTRATE
     Indication: Product used for unknown indication
     Dosage: 5-325 MG ORAL TABLET, PRN: PAIN, 0 REFILLS.
     Route: 048
  22. OMEGA-3 FATTY ACIDS [Concomitant]
     Active Substance: OMEGA-3 FATTY ACIDS
     Indication: Product used for unknown indication
     Dosage: 0 REFILLS
     Route: 048
  23. PRENATAL 1+1 FE [Concomitant]
     Indication: Product used for unknown indication
     Dosage: LOW IRON, 0 REFILLS
     Route: 048
  24. ZYRTEC [Concomitant]
     Active Substance: CETIRIZINE HYDROCHLORIDE
     Indication: Product used for unknown indication
     Dosage: 30 TABLET, 0 REFILLS
     Route: 048
  25. CHOLECALCIFEROL [Concomitant]
     Active Substance: CHOLECALCIFEROL
     Indication: Product used for unknown indication
     Dosage: 1000 INTL UNITS, 25 MCG, 0 REFILLS.
     Route: 048
  26. CYANOCOBALAMIN [Concomitant]
     Active Substance: CYANOCOBALAMIN
     Indication: Product used for unknown indication
     Dosage: 0 REFILLS
     Route: 048
  27. FAMOTIDINE [Concomitant]
     Active Substance: FAMOTIDINE
     Indication: Product used for unknown indication
     Dosage: 60 TABLETS, 0 REFILLS
     Route: 048
  28. FERROUS SULFATE [Concomitant]
     Active Substance: FERROUS SULFATE
     Indication: Product used for unknown indication
     Dosage: 325 MG (65 MG ELEMENTAL IRON), DELAYED RELEASE TABLET, 30 TAB, 0 REFILLS.
     Route: 048
  29. GABAPENTIN ENACARBIL [Concomitant]
     Active Substance: GABAPENTIN ENACARBIL
     Indication: Product used for unknown indication
     Dosage: EXTENDED RELEASE TABLET, 60 TABLET, 0 REFILLS
     Route: 048
  30. LASMIDITAN [Concomitant]
     Active Substance: LASMIDITAN
     Indication: Product used for unknown indication
     Dosage: TIME INTERVAL: 1 TOTAL: 0 REFILLS
     Route: 048
  31. MAGNESIUM OXIDE [Concomitant]
     Active Substance: MAGNESIUM OXIDE
     Indication: Product used for unknown indication
     Dosage: 750 MG, 0 REFILLS
     Route: 048
  32. MUPIROCIN [Concomitant]
     Active Substance: MUPIROCIN
     Indication: Product used for unknown indication
     Dosage: 2 % TOPICAL OINTMENT,15 GM, 0 REFILLS
  33. NORTRIPTYLINE [Concomitant]
     Active Substance: NORTRIPTYLINE
     Indication: Product used for unknown indication
     Dosage: 0 REFILLS
     Route: 048
  34. OMEPRAZOL [OMEPRAZOLE MAGNESIUM] [Concomitant]
     Indication: Product used for unknown indication
     Dosage: DELAYED RELEASE CAPSULE, 30 CAPSULES, 0 REFILLS
     Route: 048
  35. PROMETHAZINE [Concomitant]
     Active Substance: PROMETHAZINE HYDROCHLORIDE
     Indication: Product used for unknown indication
     Dosage: PRN: NAUSEA/VOMITING, 60 TABLETS, 0 REFILLS
     Route: 048
  36. RIZATRIPTAN [Concomitant]
     Active Substance: RIZATRIPTAN
     Indication: Product used for unknown indication
     Dosage: 1 TABLETS ONCE, MAY REPEAT IN 2 HOURS IF RESPONSE UNSATISFACTORY, PRN: MIGRAINE HEADACHE
     Route: 048
  37. SUCRALFATE [Concomitant]
     Active Substance: SUCRALFATE
     Indication: Product used for unknown indication
     Dosage: 60 TABLETS, 0 REFILLS
     Route: 048

REACTIONS (3)
  - Viral infection [Recovered/Resolved]
  - COVID-19 [Unknown]
  - Gastroenteritis [Unknown]

NARRATIVE: CASE EVENT DATE: 20220310
